FAERS Safety Report 5716446-5 (Version None)
Quarter: 2008Q2

REPORT INFORMATION
  Report Type: 
  Country: None (occurrence: None)
  Receive Date: 20080415
  Receipt Date: 20070305
  Transmission Date: 20081010
  Serious: Yes (Other)
  Sender: FDA-Public Use
  Company Number: 2007-01122

PATIENT
  Age: 51 Year
  Sex: Female

DRUGS (1)
  1. FERRLECIT [Suspect]
     Indication: IRON DEFICIENCY ANAEMIA
     Dosage: INTRAVENOUS
     Route: 042
     Dates: start: 20070126, end: 20070126

REACTIONS (6)
  - ANAPHYLACTOID REACTION [None]
  - ASTHENIA [None]
  - BLOOD PRESSURE DECREASED [None]
  - BURNING SENSATION [None]
  - HEART RATE INCREASED [None]
  - PARAESTHESIA [None]
